FAERS Safety Report 6103785-1 (Version None)
Quarter: 2009Q1

REPORT INFORMATION
  Report Type: 
  Country: None (occurrence: None)
  Receive Date: 20090305
  Receipt Date: 20090225
  Transmission Date: 20090719
  Serious: Yes (Other)
  Sender: FDA-Public Use
  Company Number: GB-ABBOTT-09P-167-0498904-00

PATIENT
  Sex: Female
  Weight: 85 kg

DRUGS (1)
  1. REDUCTIL [Suspect]
     Indication: WEIGHT DECREASED
     Route: 048
     Dates: start: 20080716, end: 20090121

REACTIONS (1)
  - RECTAL HAEMORRHAGE [None]
